FAERS Safety Report 9294459 (Version 2)
Quarter: 2013Q2

REPORT INFORMATION
  Report Type: Spontaneous
  Country: DE (occurrence: DE)
  Receive Date: 20130516
  Receipt Date: 20130523
  Transmission Date: 20140414
  Serious: Yes (Other)
  Sender: FDA-Public Use
  Company Number: DE-CELGENEUS-062-50794-13051983

PATIENT
  Age: 77 Year
  Sex: Male

DRUGS (1)
  1. VIDAZA [Suspect]
     Indication: CHRONIC MYELOMONOCYTIC LEUKAEMIA
     Dosage: 150MG
     Route: 058
     Dates: start: 20121210, end: 20130409

REACTIONS (4)
  - Thrombocytosis [Recovering/Resolving]
  - Chronic myelomonocytic leukaemia [Not Recovered/Not Resolved]
  - Therapeutic response decreased [Unknown]
  - Drug ineffective [Unknown]
